FAERS Safety Report 7534280-0 (Version None)
Quarter: 2011Q2

REPORT INFORMATION
  Report Type: 
  Country: None (occurrence: None)
  Receive Date: 20110608
  Receipt Date: 20070213
  Transmission Date: 20111010
  Serious: Yes (Other)
  Sender: FDA-Public Use
  Company Number: PHMT2007CA00667

PATIENT
  Sex: Female

DRUGS (3)
  1. SYNTHROID [Concomitant]
     Dates: start: 19940101
  2. DIOVAN HCT [Suspect]
     Dosage: 160-25 MG
     Route: 048
     Dates: start: 20050217
  3. DIOVAN [Suspect]
     Dosage: 80 MG
     Route: 048
     Dates: start: 20040630, end: 20050216

REACTIONS (6)
  - INFLUENZA [None]
  - JOINT SWELLING [None]
  - INFLAMMATION [None]
  - WEIGHT INCREASED [None]
  - DIVERTICULUM [None]
  - ABDOMINAL DISTENSION [None]
